FAERS Safety Report 4924944-7 (Version None)
Quarter: 2006Q1

REPORT INFORMATION
  Report Type: 
  Country: None (occurrence: None)
  Receive Date: 20060227
  Receipt Date: 20060207
  Transmission Date: 20060701
  Serious: Yes (Death, Hospitalization)
  Sender: FDA-Public Use
  Company Number: HQWYE492424JAN06

PATIENT
  Sex: Female

DRUGS (3)
  1. ENBREL [Suspect]
     Indication: RHEUMATOID ARTHRITIS
     Route: 058
     Dates: start: 20050406, end: 20060101
  2. METHOTREXATE [Concomitant]
  3. PREDNISOLONE [Concomitant]

REACTIONS (7)
  - ANOREXIA [None]
  - CHEST X-RAY ABNORMAL [None]
  - CONDITION AGGRAVATED [None]
  - DIARRHOEA [None]
  - DYSPNOEA [None]
  - PNEUMONIA [None]
  - RESPIRATORY FAILURE [None]
